FAERS Safety Report 5396211-1 (Version None)
Quarter: 2007Q3

REPORT INFORMATION
  Report Type: 
  Country: None (occurrence: None)
  Receive Date: 20070725
  Receipt Date: 20070723
  Transmission Date: 20080115
  Serious: Yes (Other)
  Sender: FDA-Public Use
  Company Number: PHNU2007DE02085

PATIENT
  Age: 61 Year
  Sex: Female

DRUGS (9)
  1. CO-DIOVAN FORTE [Suspect]
     Indication: HYPERTENSION
     Dosage: 1 TABLET/DAY
     Route: 048
     Dates: start: 20070501
  2. LASIX [Concomitant]
     Dates: start: 20070501
  3. MOXOBETA [Concomitant]
     Dates: start: 20070501
  4. METOPROLOL SUCCINATE [Concomitant]
  5. ASPIRIN [Concomitant]
  6. CARMEN [Concomitant]
  7. ATORVASTATIN CALCIUM [Concomitant]
  8. EZETROL [Concomitant]
  9. MARCUMAR [Concomitant]

REACTIONS (9)
  - ARTHRALGIA [None]
  - HYPERHIDROSIS [None]
  - LABORATORY TEST ABNORMAL [None]
  - MENISCUS LESION [None]
  - MOVEMENT DISORDER [None]
  - MYALGIA [None]
  - NAUSEA [None]
  - OEDEMA PERIPHERAL [None]
  - RHEUMATOID FACTOR INCREASED [None]
